FAERS Safety Report 16855450 (Version 1)
Quarter: 2019Q3

REPORT INFORMATION
  Report Type: Spontaneous
  Country: ES (occurrence: ES)
  Receive Date: 20190926
  Receipt Date: 20190926
  Transmission Date: 20191005
  Serious: Yes (Other)
  Sender: FDA-Public Use
  Company Number: ES-TEVA-2019-ES-1112538

PATIENT
  Age: 68 Year
  Sex: Female

DRUGS (2)
  1. FLECAINIDA (2363A) [Suspect]
     Active Substance: FLECAINIDE
     Indication: ATRIAL FIBRILLATION
     Dosage: 400 MG PER 24 HOURS
     Route: 048
     Dates: start: 201908, end: 20190805
  2. BISOPROLOL (2328A) [Suspect]
     Active Substance: BISOPROLOL
     Route: 048

REACTIONS (3)
  - Product dose omission [Recovered/Resolved]
  - Hypertensive crisis [Recovered/Resolved]
  - Wrong dose [Recovered/Resolved]

NARRATIVE: CASE EVENT DATE: 201908
